FAERS Safety Report 8362214-8 (Version None)
Quarter: 2012Q2

REPORT INFORMATION
  Report Type: 
  Country: None (occurrence: None)
  Receive Date: 20120515
  Receipt Date: 20120509
  Transmission Date: 20120825
  Serious: Yes (Other)
  Sender: FDA-Public Use
  Company Number: DE-B.I. PHARMACEUTICALS,INC./RIDGEFIELD-2012-DE-01250DE

PATIENT

DRUGS (1)
  1. PRADAXA [Suspect]
     Dosage: 300 MG

REACTIONS (5)
  - MYOCARDIAL INFARCTION [None]
  - GENERAL PHYSICAL HEALTH DETERIORATION [None]
  - BLOOD CREATINE PHOSPHOKINASE MB [None]
  - ELECTROCARDIOGRAM ST SEGMENT ELEVATION [None]
  - BLOOD CREATINE PHOSPHOKINASE INCREASED [None]
